FAERS Safety Report 25722664 (Version 1)
Quarter: 2025Q3

REPORT INFORMATION
  Report Type: Spontaneous
  Country: QA (occurrence: QA)
  Receive Date: 20250825
  Receipt Date: 20250825
  Transmission Date: 20251021
  Serious: Yes (Hospitalization, Other)
  Sender: LP PHARMACEUTICALS INC
  Company Number: QA-LP Pharmaceuticals Inc -2183124

PATIENT
  Age: 43 Year
  Sex: Female
  Weight: 45 kg

DRUGS (3)
  1. ARIPIPRAZOLE [Suspect]
     Active Substance: ARIPIPRAZOLE
     Indication: Schizophrenia
  2. BENZTROPINE [Suspect]
     Active Substance: BENZTROPINE
  3. PALIPERIDONE [Concomitant]
     Active Substance: PALIPERIDONE

REACTIONS (2)
  - Colitis ischaemic [Recovering/Resolving]
  - Faecaloma [Recovering/Resolving]
